FAERS Safety Report 12854572 (Version 1)
Quarter: 2016Q4

REPORT INFORMATION
  Report Type: Spontaneous
  Country: BR (occurrence: BR)
  Receive Date: 20161017
  Receipt Date: 20161017
  Transmission Date: 20170207
  Serious: Yes (Hospitalization, Other)
  Sender: FDA-Public Use
  Company Number: BR-ALEXION-A201607740

PATIENT
  Age: 31 Year
  Sex: Female

DRUGS (1)
  1. SOLIRIS [Suspect]
     Active Substance: ECULIZUMAB
     Indication: PAROXYSMAL NOCTURNAL HAEMOGLOBINURIA
     Dosage: 900 MG, Q2W
     Route: 042
     Dates: start: 20131205

REACTIONS (9)
  - Haematocrit abnormal [Unknown]
  - Eating disorder [Unknown]
  - Asthenia [Not Recovered/Not Resolved]
  - Reticulocyte count abnormal [Unknown]
  - Blood lactate dehydrogenase abnormal [Unknown]
  - Chromaturia [Not Recovered/Not Resolved]
  - Haemoglobin abnormal [Unknown]
  - Blood bilirubin abnormal [Unknown]
  - Haemolysis [Unknown]

NARRATIVE: CASE EVENT DATE: 20160926
